FAERS Safety Report 20546564 (Version 1)
Quarter: 2022Q1

REPORT INFORMATION
  Report Type: Report from Study
  Country: DE (occurrence: None)
  Receive Date: 20220303
  Receipt Date: 20220303
  Transmission Date: 20220423
  Serious: Yes (Hospitalization)
  Sender: FDA-Public Use
  Company Number: DE-ROCHE-3039988

PATIENT
  Age: 77 Year
  Sex: Male

DRUGS (4)
  1. OBINUTUZUMAB [Suspect]
     Active Substance: OBINUTUZUMAB
     Indication: Chronic lymphocytic leukaemia
     Dosage: LAST DOSE OF OBINUTUZUMAB WAS 1000 MG ON 10/JAN/2019
     Route: 042
     Dates: start: 20180823
  2. VENETOCLAX [Suspect]
     Active Substance: VENETOCLAX
     Indication: Chronic lymphocytic leukaemia
     Dosage: LAST DOSE OF VENETOCLAX 400 MG ON 25/JUL/2019
     Route: 048
     Dates: start: 20180913
  3. PANTOPRAZOLE [Concomitant]
     Active Substance: PANTOPRAZOLE
     Dates: start: 20201214, end: 20210918
  4. ACETAMINOPHEN [Concomitant]
     Active Substance: ACETAMINOPHEN
     Dates: start: 20210917, end: 20210920

REACTIONS (1)
  - Enlarged uvula [Recovered/Resolved with Sequelae]

NARRATIVE: CASE EVENT DATE: 20201214
